FAERS Safety Report 7703431-7 (Version None)
Quarter: 2011Q3

REPORT INFORMATION
  Report Type: 
  Country: None (occurrence: None)
  Receive Date: 20110823
  Receipt Date: 20110823
  Transmission Date: 20111222
  Serious: Yes (Other)
  Sender: FDA-Public Use
  Company Number: None

PATIENT
  Sex: Male

DRUGS (1)
  1. NEXAVAR [Suspect]
     Indication: ILL-DEFINED DISORDER
     Dosage: 200MG
     Route: 048
     Dates: start: 20110305, end: 20110822

REACTIONS (2)
  - DIARRHOEA HAEMORRHAGIC [None]
  - PAIN [None]
